FAERS Safety Report 17798008 (Version 3)
Quarter: 2020Q2

REPORT INFORMATION
  Report Type: Spontaneous
  Country: GB (occurrence: GB)
  Receive Date: 20200518
  Receipt Date: 20200630
  Transmission Date: 20200714
  Serious: Yes (Life-Threatening, Other)
  Sender: FDA-Public Use
  Company Number: GB-SUN PHARMACEUTICAL INDUSTRIES LTD-2020RR-247582

PATIENT
  Age: 38 Year
  Sex: Female
  Weight: 50.34 kg

DRUGS (2)
  1. VENLAFAXINE [Suspect]
     Active Substance: VENLAFAXINE HYDROCHLORIDE
     Indication: MAJOR DEPRESSION
     Dosage: 300 MILLIGRAMS, UNK
     Route: 048
     Dates: start: 201710, end: 201811
  2. QUETIAPINE. [Concomitant]
     Active Substance: QUETIAPINE
     Indication: PRODUCT USED FOR UNKNOWN INDICATION
     Dosage: A FEW TIMES A WEEK
     Route: 065

REACTIONS (13)
  - Disorientation [Recovered/Resolved with Sequelae]
  - Palpitations [Recovered/Resolved with Sequelae]
  - Asthenia [Unknown]
  - Syncope [Recovered/Resolved with Sequelae]
  - Euphoric mood [Unknown]
  - Dizziness [Recovered/Resolved with Sequelae]
  - Tremor [Recovered/Resolved with Sequelae]
  - Loss of consciousness [Recovered/Resolved with Sequelae]
  - Hyperhidrosis [Recovered/Resolved with Sequelae]
  - Alcohol interaction [Unknown]
  - Insomnia [Recovered/Resolved with Sequelae]
  - Contusion [Recovered/Resolved with Sequelae]
  - Derealisation [Recovered/Resolved with Sequelae]

NARRATIVE: CASE EVENT DATE: 201711
